FAERS Safety Report 5106959-1 (Version None)
Quarter: 2006Q3

REPORT INFORMATION
  Report Type: 
  Country: None (occurrence: None)
  Receive Date: 20060913
  Receipt Date: 20060901
  Transmission Date: 20061208
  Serious: Yes (Hospitalization, Disabling, Other)
  Sender: FDA-Public Use
  Company Number: 2006RL000265

PATIENT
  Age: 58 Year
  Sex: Female
  Weight: 99.7913 kg

DRUGS (14)
  1. RYTHMOL [Suspect]
     Indication: ATRIAL FIBRILLATION
     Dosage: 225 MG; TID; PO; SEE IMAGE
     Route: 048
     Dates: start: 20050701, end: 20060101
  2. RYTHMOL [Suspect]
     Indication: ATRIAL FIBRILLATION
     Dosage: 225 MG; TID; PO; SEE IMAGE
     Route: 048
     Dates: start: 20060101, end: 20060601
  3. RYTHMOL [Suspect]
     Indication: ATRIAL FIBRILLATION
     Dosage: 425 MG; BID; PO
     Route: 048
     Dates: start: 20060601
  4. COUMADIN [Concomitant]
  5. ATACAND [Concomitant]
  6. HYDRALAZINE [Concomitant]
  7. NAPROSYN [Concomitant]
  8. ZOLOFT [Concomitant]
  9. WELLBUTRIN XL [Concomitant]
  10. CLONAZEPAM [Concomitant]
  11. DILTIAZEM [Concomitant]
  12. METFORMIN [Concomitant]
  13. GLIPIZIDE [Concomitant]
  14. FUROSEMIDE [Concomitant]

REACTIONS (11)
  - ANKLE FRACTURE [None]
  - ATRIAL FIBRILLATION [None]
  - DIZZINESS [None]
  - FALL [None]
  - FIBULA FRACTURE [None]
  - HEART RATE INCREASED [None]
  - IMPAIRED WORK ABILITY [None]
  - TIBIA FRACTURE [None]
  - VENTRICULAR EXTRASYSTOLES [None]
  - WEIGHT DECREASED [None]
  - WOLFF-PARKINSON-WHITE SYNDROME [None]
